FAERS Safety Report 17500604 (Version 1)
Quarter: 2020Q1

REPORT INFORMATION
  Report Type: Spontaneous
  Country: FR (occurrence: FR)
  Receive Date: 20200305
  Receipt Date: 20200305
  Transmission Date: 20200409
  Serious: Yes (Hospitalization)
  Sender: FDA-Public Use
  Company Number: NVSC2020FR059590

PATIENT
  Age: 42 Year
  Sex: Female
  Weight: 63 kg

DRUGS (6)
  1. CIPROFLOXACIN. [Suspect]
     Active Substance: CIPROFLOXACIN
     Indication: PYELONEPHRITIS ACUTE
     Dosage: 400 MG, QD
     Route: 042
     Dates: start: 20191023, end: 20191028
  2. SPIRAMYCIN [Suspect]
     Active Substance: SPIRAMYCIN
     Indication: INFECTION
     Dosage: 2 DF, QD
     Route: 048
     Dates: start: 20190920, end: 20190928
  3. CEFTRIAXONE. [Suspect]
     Active Substance: CEFTRIAXONE
     Indication: PYELONEPHRITIS ACUTE
     Dosage: 1 G, QD (POUDRE POUR SOLUTION INJECTABLE )
     Route: 042
     Dates: start: 20191023, end: 20191023
  4. ACETAMINOPHEN (PARACETAMOL) [Suspect]
     Active Substance: ACETAMINOPHEN
     Indication: PAIN
     Dosage: 4 G, QD
     Route: 042
     Dates: start: 20191023, end: 20191028
  5. LOVENOX [Suspect]
     Active Substance: ENOXAPARIN SODIUM
     Indication: CARDIOVASCULAR EVENT PROPHYLAXIS
     Dosage: 4000 UI
     Route: 058
     Dates: start: 20191024, end: 20191030
  6. METOCLOPRAMIDE. [Suspect]
     Active Substance: METOCLOPRAMIDE
     Indication: VOMITING
     Dosage: 30 MG, QD (SI BESOIN)
     Route: 042
     Dates: start: 20191024, end: 20191028

REACTIONS (2)
  - Cholestasis [Recovering/Resolving]
  - Liver function test abnormal [Recovering/Resolving]

NARRATIVE: CASE EVENT DATE: 20191028
